FAERS Safety Report 8233202-7 (Version None)
Quarter: 2012Q1

REPORT INFORMATION
  Report Type: 
  Country: None (occurrence: None)
  Receive Date: 20120326
  Receipt Date: 20120322
  Transmission Date: 20120608
  Serious: No
  Sender: FDA-Public Use
  Company Number: US-PFIZER INC-2012023515

PATIENT
  Sex: Female
  Weight: 81.6 kg

DRUGS (1)
  1. ADVIL CONGESTION RELIEF [Suspect]
     Indication: NASOPHARYNGITIS
     Dosage: 200/10 MG, 1X/DAY
     Route: 048
     Dates: start: 20120123

REACTIONS (1)
  - DRUG INEFFECTIVE [None]
